FAERS Safety Report 10273655 (Version 2)
Quarter: 2014Q3

REPORT INFORMATION
  Report Type: Spontaneous
  Country: BE (occurrence: None)
  Receive Date: 20140630
  Receipt Date: 20140702
  Transmission Date: 20150326
  Serious: Yes (Hospitalization)
  Sender: FDA-Public Use
  Company Number: 2014-BE-007961

PATIENT
  Age: 28 Year
  Sex: Female
  Weight: 70 kg

DRUGS (5)
  1. PROVIGIL [Concomitant]
     Active Substance: MODAFINIL
  2. VENLAFAXINE [Concomitant]
     Active Substance: VENLAFAXINE HYDROCHLORIDE
  3. ORAL CONTRACEPTIVE NOS [Concomitant]
     Active Substance: UNSPECIFIED INGREDIENT
  4. XYREM [Suspect]
     Active Substance: SODIUM OXYBATE
     Indication: CATAPLEXY
     Dosage: 4.5 G, BID, ORAL
     Route: 048
     Dates: start: 20140318, end: 20140602
  5. XYREM [Suspect]
     Active Substance: SODIUM OXYBATE
     Indication: NARCOLEPSY
     Dosage: 4.5 G, BID, ORAL
     Route: 048
     Dates: start: 20140318, end: 20140602

REACTIONS (3)
  - Hallucination, auditory [None]
  - Delusion [None]
  - Paranoia [None]

NARRATIVE: CASE EVENT DATE: 2014
